FAERS Safety Report 8888724 (Version 2)
Quarter: 2012Q4

REPORT INFORMATION
  Report Type: 
  Country: JP (occurrence: JP)
  Receive Date: 20121106
  Receipt Date: 20121114
  Transmission Date: 20130627
  Serious: Yes (Hospitalization)
  Sender: FDA-Public Use
  Company Number: JP-GLAXOSMITHKLINE-B0841823A

PATIENT
  Age: 80 Year
  Sex: Male
  Weight: 62 kg

DRUGS (3)
  1. VALTREX [Suspect]
     Indication: HERPES ZOSTER
     Dosage: 1000MG Three times per day
     Route: 048
     Dates: start: 20121027, end: 20121028
  2. ALLOPURINOL [Concomitant]
     Indication: HYPERURICAEMIA
     Dosage: 100MG Per day
     Route: 048
     Dates: start: 20100712
  3. SUNRYTHM [Concomitant]
     Indication: ATRIAL FIBRILLATION
     Dosage: 50MG Three times per day
     Route: 048
     Dates: start: 20100712, end: 20121030

REACTIONS (5)
  - Renal failure acute [Recovering/Resolving]
  - Dehydration [Unknown]
  - Asthenia [Unknown]
  - Blood urea increased [Unknown]
  - Blood creatinine increased [Unknown]
